FAERS Safety Report 25361969 (Version 1)
Quarter: 2025Q2

REPORT INFORMATION
  Report Type: Spontaneous
  Country: US (occurrence: US)
  Receive Date: 20250527
  Receipt Date: 20250527
  Transmission Date: 20250717
  Serious: Yes (Other)
  Sender: ROCHE
  Company Number: US-ROCHE-10000287554

PATIENT
  Age: 19 Year
  Sex: Female
  Weight: 56.7 kg

DRUGS (1)
  1. XOLAIR [Suspect]
     Active Substance: OMALIZUMAB
     Indication: Chronic spontaneous urticaria
     Dosage: ONGOING
     Route: 058
     Dates: start: 2020

REACTIONS (7)
  - Muscular weakness [Unknown]
  - Rheumatoid arthritis [Unknown]
  - Autoimmune disorder [Unknown]
  - Mobility decreased [Unknown]
  - Tremor [Unknown]
  - Asthenia [Unknown]
  - Product complaint [Unknown]

NARRATIVE: CASE EVENT DATE: 20241001
